FAERS Safety Report 18305787 (Version 2)
Quarter: 2020Q4

REPORT INFORMATION
  Report Type: Spontaneous
  Country: US (occurrence: US)
  Receive Date: 20200923
  Receipt Date: 20201012
  Transmission Date: 20210113
  Serious: Yes (Life-Threatening, Other)
  Sender: FDA-Public Use
  Company Number: US-009507513-2009USA007817

PATIENT
  Age: 47 Year
  Sex: Male

DRUGS (1)
  1. BRIDION [Suspect]
     Active Substance: SUGAMMADEX
     Indication: SINUS OPERATION
     Dosage: 100 MILLIGRAM, UNK
     Route: 042
     Dates: start: 20200917, end: 20200917

REACTIONS (2)
  - Product use in unapproved indication [Unknown]
  - Cardiac arrest [Recovered/Resolved]

NARRATIVE: CASE EVENT DATE: 20200917
